FAERS Safety Report 21831445 (Version 2)
Quarter: 2023Q1

REPORT INFORMATION
  Report Type: Report from Study
  Country: IL (occurrence: IL)
  Receive Date: 20230106
  Receipt Date: 20230130
  Transmission Date: 20230418
  Serious: Yes (Other)
  Sender: FDA-Public Use
  Company Number: IL-UROGEN PHARMA LTD.-2022-UGN-000146

PATIENT

DRUGS (6)
  1. JELMYTO [Suspect]
     Active Substance: MITOMYCIN
     Indication: Transitional cell cancer of the renal pelvis and ureter
     Dosage: 12 MILLILITER, ONE TIME PER WEEK (INSTILLATION) INTRARENAL (RENAL PELVIS).
     Dates: start: 20220626, end: 20220626
  2. JELMYTO [Suspect]
     Active Substance: MITOMYCIN
     Dosage: 12 MILLILITER, ONE TIME PER WEEK (INSTILLATION) INTRARENAL (RENAL PELVIS).
     Dates: start: 20220703, end: 20220703
  3. JELMYTO [Suspect]
     Active Substance: MITOMYCIN
     Dosage: 12 MILLILITER, ONE TIME PER WEEK (INSTILLATION) INTRARENAL (RENAL PELVIS).
     Dates: start: 20220710, end: 20220710
  4. JELMYTO [Suspect]
     Active Substance: MITOMYCIN
     Dosage: 12 MILLILITER, ONE TIME PER WEEK (INSTILLATION) INTRARENAL (RENAL PELVIS).
     Dates: start: 20220717, end: 20220717
  5. ASPIRIN [Concomitant]
     Active Substance: ASPIRIN
     Indication: Hypercholesterolaemia
     Dosage: 100 MG, QD
     Route: 048
  6. ROSUVASTATIN [Concomitant]
     Active Substance: ROSUVASTATIN
     Indication: Hypercholesterolaemia
     Dosage: 10 MG, QD
     Route: 048

REACTIONS (2)
  - Malignant neoplasm progression [Recovered/Resolved]
  - Drug ineffective [Unknown]

NARRATIVE: CASE EVENT DATE: 20220101
